FAERS Safety Report 10039256 (Version 2)
Quarter: 2014Q2

REPORT INFORMATION
  Report Type: Report from Study
  Country: MX (occurrence: MX)
  Receive Date: 20140326
  Receipt Date: 20140424
  Transmission Date: 20141212
  Serious: Yes (Other)
  Sender: FDA-Public Use
  Company Number: PHHY2014MX035624

PATIENT
  Age: 68 Year
  Sex: Female

DRUGS (4)
  1. CO-DIOVAN [Suspect]
     Indication: HYPERTENSION
     Dosage: UNK DF (160/12.5), DAILY
     Route: 048
     Dates: start: 2004, end: 2012
  2. CO-DIOVAN [Suspect]
     Dosage: 2 DF (160/12.5MG), PRN (AS NEEDED)
     Route: 048
  3. CO-DIOVAN [Suspect]
     Dosage: 1 DF (160/12.5MG), DAILY
     Route: 048
     Dates: start: 2012
  4. LOSARTAN [Concomitant]
     Dosage: UNK UKN, UNK
     Dates: start: 2012, end: 2012

REACTIONS (8)
  - Diverticulum intestinal [Not Recovered/Not Resolved]
  - Parkinson^s disease [Not Recovered/Not Resolved]
  - Arrhythmia [Recovered/Resolved]
  - Drug intolerance [Recovered/Resolved]
  - Gastric infection [Recovered/Resolved]
  - Gastrointestinal inflammation [Not Recovered/Not Resolved]
  - Urinary tract infection [Recovered/Resolved]
  - Blood pressure increased [Recovered/Resolved]
